FAERS Safety Report 23108632 (Version 3)
Quarter: 2024Q1

REPORT INFORMATION
  Report Type: Spontaneous
  Country: US (occurrence: US)
  Receive Date: 20231026
  Receipt Date: 20240108
  Transmission Date: 20240410
  Serious: No
  Sender: FDA-Public Use
  Company Number: US-PFIZER INC-PV202300166530

PATIENT
  Age: 7 Year
  Sex: Male

DRUGS (1)
  1. GENOTROPIN [Suspect]
     Active Substance: SOMATROPIN
     Dosage: 0.8 MG (6 DAYS PER WEEK)

REACTIONS (4)
  - Product supply issue [Unknown]
  - Drug administered in wrong device [Unknown]
  - Product prescribing error [Unknown]
  - Incorrect dose administered [Unknown]
